FAERS Safety Report 9881989 (Version 3)
Quarter: 2014Q2

REPORT INFORMATION
  Report Type: Spontaneous
  Country: IT (occurrence: IT)
  Receive Date: 20140207
  Receipt Date: 20140410
  Transmission Date: 20141212
  Serious: Yes (Hospitalization)
  Sender: FDA-Public Use
  Company Number: IT-BRISTOL-MYERS SQUIBB COMPANY-20151999

PATIENT
  Age: 61 Year
  Sex: Male

DRUGS (8)
  1. METFORMIN HCL [Suspect]
     Indication: DIABETES MELLITUS
     Route: 048
     Dates: start: 20130101, end: 20131206
  2. GLICLAZIDE [Suspect]
     Indication: DIABETES MELLITUS
     Route: 048
     Dates: start: 20130101, end: 20131206
  3. CARDIOASPIRIN [Concomitant]
     Dates: start: 20130101, end: 20131206
  4. PLAVIX TABS [Concomitant]
     Route: 048
     Dates: start: 20130101, end: 20131206
  5. NITRODERM PATCH [Concomitant]
     Route: 062
     Dates: start: 20131123, end: 20131206
  6. SIMVASTATIN TAB [Concomitant]
     Dates: start: 20131123, end: 20131206
  7. RAMIPRIL [Concomitant]
     Indication: HYPERTENSION
     Route: 048
     Dates: start: 20130101, end: 20131206
  8. CARVEDILOL [Concomitant]
     Indication: HYPERTENSION
     Route: 048
     Dates: start: 20130101, end: 20130106

REACTIONS (3)
  - Aphasia [Recovered/Resolved]
  - Hypoglycaemia [Recovered/Resolved]
  - Slow response to stimuli [Recovered/Resolved]
